FAERS Safety Report 19612178 (Version 4)
Quarter: 2021Q4

REPORT INFORMATION
  Report Type: Spontaneous
  Country: US (occurrence: US)
  Receive Date: 20210726
  Receipt Date: 20211001
  Transmission Date: 20220303
  Serious: No
  Sender: FDA-Public Use
  Company Number: US-AMGEN-USASP2021112975

PATIENT
  Age: 71 Year
  Sex: Female
  Weight: 52.15 kg

DRUGS (1)
  1. NEULASTA [Suspect]
     Active Substance: PEGFILGRASTIM
     Indication: Neutropenia
     Dosage: UNK UNK, AFTER CHEMO
     Route: 065
     Dates: start: 20210719

REACTIONS (12)
  - Fatigue [Unknown]
  - White blood cell count decreased [Unknown]
  - Disturbance in attention [Unknown]
  - Stress [Unknown]
  - Device issue [Unknown]
  - Device mechanical issue [Unknown]
  - Wrong technique in product usage process [Unknown]
  - Application site pain [Unknown]
  - Urinary tract infection [Not Recovered/Not Resolved]
  - Vaginal infection [Unknown]
  - Uterine prolapse [Unknown]
  - Accidental exposure to product [Unknown]

NARRATIVE: CASE EVENT DATE: 20210101
